FAERS Safety Report 10563278 (Version 1)
Quarter: 2014Q4

REPORT INFORMATION
  Report Type: Spontaneous
  Country: US (occurrence: None)
  Receive Date: 20141103
  Receipt Date: 20141103
  Transmission Date: 20150529
  Serious: Yes (Disabling)
  Sender: FDA-Public Use
  Company Number: None

PATIENT
  Age: 54 Year
  Sex: Female
  Weight: 52.16 kg

DRUGS (1)
  1. EFFEXOR XR [Suspect]
     Active Substance: VENLAFAXINE HYDROCHLORIDE
     Indication: ANXIETY
     Dosage: 2 PILLS, ONCE DAILY, TAKEN BY MOUTH
     Route: 048
     Dates: start: 20130623, end: 20131101

REACTIONS (15)
  - Activities of daily living impaired [None]
  - Quality of life decreased [None]
  - Cognitive disorder [None]
  - Impaired work ability [None]
  - Impaired driving ability [None]
  - Fatigue [None]
  - Insomnia [None]
  - Amnesia [None]
  - Respiratory disorder [None]
  - Palpitations [None]
  - Dementia [None]
  - Anxiety [None]
  - Tachycardia [None]
  - Drug withdrawal syndrome [None]
  - Confusional state [None]

NARRATIVE: CASE EVENT DATE: 20130624
